FAERS Safety Report 11887080 (Version 5)
Quarter: 2016Q1

REPORT INFORMATION
  Report Type: Report from Study
  Country: AU (occurrence: AU)
  Receive Date: 20160104
  Receipt Date: 20160309
  Transmission Date: 20160526
  Serious: Yes (Other)
  Sender: FDA-Public Use
  Company Number: AU-SA-2015SA100780

PATIENT
  Age: 43 Year
  Sex: Female

DRUGS (15)
  1. BETMIGA [Concomitant]
     Active Substance: MIRABEGRON
     Indication: DRUG THERAPY
     Route: 048
     Dates: start: 201501, end: 20150916
  2. CIRCADIN [Concomitant]
     Active Substance: MELATONIN
     Indication: DRUG THERAPY
     Route: 048
     Dates: start: 20150625
  3. TEMAZEPAM. [Concomitant]
     Active Substance: TEMAZEPAM
     Indication: PROPHYLAXIS
     Route: 048
     Dates: start: 20150525, end: 20150613
  4. PANADOL [Concomitant]
     Active Substance: ACETAMINOPHEN
     Indication: DRUG THERAPY
     Route: 048
     Dates: start: 1990
  5. LORATADINE. [Concomitant]
     Active Substance: LORATADINE
     Indication: PROPHYLAXIS
     Route: 048
     Dates: start: 20150524, end: 20150607
  6. BETMIGA [Concomitant]
     Active Substance: MIRABEGRON
     Indication: DRUG THERAPY
     Route: 048
     Dates: start: 20150916
  7. LEMTRADA [Suspect]
     Active Substance: ALEMTUZUMAB
     Route: 042
     Dates: start: 20150525, end: 20150529
  8. LYSINE [Concomitant]
     Active Substance: LYSINE
     Indication: PROPHYLAXIS
     Route: 048
  9. RANITIDINE [Concomitant]
     Active Substance: RANITIDINE\RANITIDINE HYDROCHLORIDE
     Indication: PROPHYLAXIS
     Route: 048
     Dates: start: 20150524, end: 20150607
  10. METHYLPREDNISOLONE. [Concomitant]
     Active Substance: METHYLPREDNISOLONE
     Indication: PROPHYLAXIS
     Route: 042
     Dates: start: 20150525, end: 20150527
  11. IBUPROFEN. [Concomitant]
     Active Substance: IBUPROFEN
     Indication: DRUG THERAPY
     Route: 048
  12. ZOVIRAX [Concomitant]
     Active Substance: ACYCLOVIR
     Indication: DRUG THERAPY
     Route: 061
  13. VALACICLOVIR [Concomitant]
     Active Substance: VALACYCLOVIR HYDROCHLORIDE
     Indication: PROPHYLAXIS
     Route: 048
     Dates: start: 20150524, end: 20150623
  14. VALACICLOVIR [Concomitant]
     Active Substance: VALACYCLOVIR HYDROCHLORIDE
     Indication: PROPHYLAXIS
     Route: 048
     Dates: start: 20151204, end: 20151213
  15. TEMAZEPAM. [Concomitant]
     Active Substance: TEMAZEPAM
     Indication: DRUG THERAPY
     Route: 048
     Dates: start: 20150525, end: 20150613

REACTIONS (13)
  - Rash [Recovered/Resolved]
  - Fatigue [Recovered/Resolved]
  - Localised infection [Recovered/Resolved]
  - Insomnia [Unknown]
  - Pelvic pain [Recovering/Resolving]
  - Myalgia [Recovering/Resolving]
  - Basal cell carcinoma [Recovered/Resolved]
  - Upper respiratory tract infection [Recovered/Resolved]
  - Depressed mood [Recovering/Resolving]
  - Oral herpes [Recovered/Resolved]
  - Palpitations [Recovered/Resolved]
  - Oral herpes [Recovering/Resolving]
  - Depressed mood [Recovered/Resolved]

NARRATIVE: CASE EVENT DATE: 20150525
